FAERS Safety Report 11666399 (Version 1)
Quarter: 2015Q4

REPORT INFORMATION
  Report Type: Spontaneous
  Country: US (occurrence: US)
  Receive Date: 20151027
  Receipt Date: 20151027
  Transmission Date: 20160304
  Serious: No
  Sender: FDA-Public Use
  Company Number: US-ELI_LILLY_AND_COMPANY-US201002000552

PATIENT
  Age: 79 Year
  Sex: Female

DRUGS (1)
  1. FORTEO [Suspect]
     Active Substance: TERIPARATIDE
     Indication: OSTEOPOROSIS
     Dates: start: 200902

REACTIONS (9)
  - Tooth extraction [Unknown]
  - Mastication disorder [Unknown]
  - Endodontic procedure [Unknown]
  - Erythema [Unknown]
  - Sleep disorder [Unknown]
  - Pain in jaw [Unknown]
  - Dental discomfort [Unknown]
  - Insomnia [Unknown]
  - Swelling [Unknown]

NARRATIVE: CASE EVENT DATE: 200911
